FAERS Safety Report 14633744 (Version 1)
Quarter: 2018Q1

REPORT INFORMATION
  Report Type: Spontaneous
  Country: US (occurrence: US)
  Receive Date: 20180314
  Receipt Date: 20180314
  Transmission Date: 20180509
  Serious: No
  Sender: FDA-Public Use
  Company Number: US-TEVA-2018-US-867927

PATIENT
  Sex: Female

DRUGS (1)
  1. KELNOR 1/35 [Suspect]
     Active Substance: ETHINYL ESTRADIOL\ETHYNODIOL DIACETATE
     Dosage: DOSE STRENGTH: 1 MG/0.035 MG
     Route: 065
     Dates: start: 201802

REACTIONS (3)
  - Breast mass [Unknown]
  - Nipple disorder [Unknown]
  - Breast tenderness [Unknown]

NARRATIVE: CASE EVENT DATE: 201802
